FAERS Safety Report 15181140 (Version 1)
Quarter: 2018Q3

REPORT INFORMATION
  Report Type: Other
  Country: CA (occurrence: US)
  Receive Date: 20180723
  Receipt Date: 20180723
  Transmission Date: 20181010
  Serious: No
  Sender: FDA-Public Use
  Company Number: US-APOLLO HEALTH AND BEAUTY CARE INC.-2052580

PATIENT

DRUGS (1)
  1. EQUATE CLEAR COMPLEXION FACIAL CLEANSER [Suspect]
     Active Substance: BENZOYL PEROXIDE

REACTIONS (1)
  - Acne [None]
